FAERS Safety Report 9893080 (Version 1)
Quarter: 2014Q1

REPORT INFORMATION
  Report Type: Report from Study
  Country: US (occurrence: US)
  Receive Date: 20140213
  Receipt Date: 20140213
  Transmission Date: 20141002
  Serious: Yes (Other)
  Sender: FDA-Public Use
  Company Number: US-ROCHE-1343848

PATIENT
  Sex: Male

DRUGS (4)
  1. NUTROPIN AQ [Suspect]
     Indication: GROWTH HORMONE DEFICIENCY
     Route: 058
     Dates: start: 20120502, end: 201212
  2. NUTROPIN AQ [Suspect]
     Dosage: DOSE REDUCED TO 3.2 MG, THEN INCREASED TO 3.4 MG AND THEN TO 3.6 MG
     Route: 058
  3. LEVOTHYROXINE [Concomitant]
     Dosage: DOSES OF 88 MCG AND 120 MCG ALSO TAKEN.
     Route: 048
     Dates: start: 20120425
  4. NEXIUM [Concomitant]
     Route: 048

REACTIONS (2)
  - Gastroenteritis eosinophilic [Unknown]
  - Cyclic vomiting syndrome [Unknown]
